FAERS Safety Report 11344102 (Version 2)
Quarter: 2015Q3

REPORT INFORMATION
  Report Type: Spontaneous
  Country: GB (occurrence: GB)
  Receive Date: 20150806
  Receipt Date: 20150806
  Transmission Date: 20151125
  Serious: Yes (Other)
  Sender: FDA-Public Use
  Company Number: GB-WATSON-2015-16402

PATIENT
  Sex: Female

DRUGS (5)
  1. DIAZEPAM (UNKNOWN) [Suspect]
     Active Substance: DIAZEPAM
     Indication: INTENTIONAL PRODUCT MISUSE
     Dosage: UNK
     Route: 065
  2. PARACETAMOL-CODEINE PHOSPHATE (UNKNOWN) [Suspect]
     Active Substance: ACETAMINOPHEN\CODEINE PHOSPHATE
     Indication: DRUG ABUSE
  3. PARACETAMOL-CODEINE PHOSPHATE (UNKNOWN) [Suspect]
     Active Substance: ACETAMINOPHEN\CODEINE PHOSPHATE
     Indication: DRUG DEPENDENCE
     Dosage: 16 DF, DAILY (30 MG/500 MG)
     Route: 048
  4. PARACETAMOL-CODEINE PHOSPHATE (UNKNOWN) [Suspect]
     Active Substance: ACETAMINOPHEN\CODEINE PHOSPHATE
     Indication: POST VIRAL FATIGUE SYNDROME
  5. DIHYDROCODEINE (UNKNOWN) [Suspect]
     Active Substance: DIHYDROCODEINE
     Indication: DRUG DEPENDENCE
     Dosage: 600 TABLETS WEEKLY
     Route: 065

REACTIONS (7)
  - Pain [Recovered/Resolved]
  - Overdose [Recovered/Resolved]
  - Drug dependence [Recovered/Resolved]
  - Drug withdrawal syndrome [Recovered/Resolved]
  - Intentional product misuse [Unknown]
  - Drug abuse [Recovered/Resolved]
  - Chills [Recovered/Resolved]
